FAERS Safety Report 14336632 (Version 1)
Quarter: 2017Q4

REPORT INFORMATION
  Report Type: Spontaneous
  Country: RU (occurrence: RU)
  Receive Date: 20171229
  Receipt Date: 20171229
  Transmission Date: 20180321
  Serious: Yes (Hospitalization)
  Sender: FDA-Public Use
  Company Number: RU-BAYER-2017-247136

PATIENT
  Age: 12 Year
  Sex: Female

DRUGS (1)
  1. ASPIRIN. [Suspect]
     Active Substance: ASPIRIN

REACTIONS (10)
  - Intentional overdose [None]
  - Palpitations [Recovered/Resolved]
  - Dyspnoea [Recovered/Resolved]
  - Vomiting [Recovered/Resolved]
  - Thirst [Recovered/Resolved]
  - Body temperature increased [Recovered/Resolved]
  - Tinnitus [Recovered/Resolved]
  - Respiratory disorder [Recovered/Resolved]
  - Asthenia [Recovered/Resolved]
  - Lethargy [Recovered/Resolved]
